FAERS Safety Report 14231922 (Version 2)
Quarter: 2017Q4

REPORT INFORMATION
  Report Type: Spontaneous
  Country: JP (occurrence: JP)
  Receive Date: 20171128
  Receipt Date: 20171201
  Transmission Date: 20180321
  Serious: Yes (Hospitalization)
  Sender: FDA-Public Use
  Company Number: JP-BAXTER-2017BAX040073

PATIENT
  Sex: Male
  Weight: 52 kg

DRUGS (1)
  1. DIANEAL [Suspect]
     Active Substance: CALCIUM CHLORIDE\DEXTROSE\MAGNESIUM CHLORIDE\SODIUM CHLORIDE\SODIUM LACTATE
     Indication: CHRONIC KIDNEY DISEASE
     Route: 033
     Dates: start: 20170127

REACTIONS (2)
  - Blood pressure inadequately controlled [Unknown]
  - Aortic dissection [Recovered/Resolved]

NARRATIVE: CASE EVENT DATE: 20171125
